FAERS Safety Report 7931966-0 (Version None)
Quarter: 2011Q4

REPORT INFORMATION
  Report Type: 
  Country: None (occurrence: None)
  Receive Date: 20111121
  Receipt Date: 20111108
  Transmission Date: 20120403
  Serious: Yes (Death, Hospitalization, Disabling)
  Sender: FDA-Public Use
  Company Number: US-ROCHE-1005660

PATIENT
  Sex: Female

DRUGS (15)
  1. FAMOTIDINE [Concomitant]
  2. PLAVIX [Concomitant]
  3. ZYRTEC [Concomitant]
  4. APIXABAN [Suspect]
     Indication: EMBOLISM
     Route: 048
     Dates: start: 20110405
  5. ENOXAPARIN SODIUM [Suspect]
     Indication: EMBOLISM
     Dates: start: 20110405, end: 20110410
  6. CRESTOR [Concomitant]
     Dates: start: 20060101
  7. HEPARIN [Concomitant]
     Dates: start: 20110331, end: 20110405
  8. APIXABAN [Suspect]
     Dates: start: 20110413, end: 20110420
  9. CEPACOL [Concomitant]
     Dates: start: 20110405
  10. WARFARIN SODIUM [Suspect]
     Indication: EMBOLISM
     Route: 048
     Dates: start: 20110405, end: 20110420
  11. ALTACE [Concomitant]
     Dates: start: 20050101
  12. ASPIRIN [Concomitant]
     Dates: start: 20050101
  13. ALTEPLASE [Suspect]
     Indication: EMBOLISM
  14. TRICOR [Concomitant]
     Dates: start: 20090101
  15. PERCOCET [Concomitant]
     Dates: start: 20110331, end: 20110404

REACTIONS (5)
  - CARDIO-RESPIRATORY ARREST [None]
  - PNEUMONIA [None]
  - CEREBROVASCULAR ACCIDENT [None]
  - METASTATIC NEOPLASM [None]
  - HAEMORRHAGIC STROKE [None]
